FAERS Safety Report 7118472-0 (Version None)
Quarter: 2010Q4

REPORT INFORMATION
  Report Type: 
  Country: None (occurrence: None)
  Receive Date: 20101123
  Receipt Date: 20101115
  Transmission Date: 20110411
  Serious: Yes (Death)
  Sender: FDA-Public Use
  Company Number: US-MILLENNIUM PHARMACEUTICALS, INC.-2010-04626

PATIENT
  Sex: Male
  Weight: 67.8 kg

DRUGS (2)
  1. VELCADE [Suspect]
     Indication: MULTIPLE MYELOMA
     Dosage: 1.3 MG/M2, UNK
     Route: 042
     Dates: start: 20100111, end: 20100816
  2. DOXIL                              /00330902/ [Suspect]
     Indication: MULTIPLE MYELOMA

REACTIONS (2)
  - HEADACHE [None]
  - SUBDURAL EMPYEMA [None]
